FAERS Safety Report 10690744 (Version 1)
Quarter: 2014Q4

REPORT INFORMATION
  Report Type: Spontaneous
  Country: US (occurrence: None)
  Receive Date: 20141218
  Receipt Date: 20141218
  Transmission Date: 20150529
  Serious: Yes (Hospitalization)
  Sender: FDA-Public Use
  Company Number: PHEH2014US002896

PATIENT
  Sex: Female

DRUGS (2)
  1. RAPAMUNE [Suspect]
     Active Substance: SIROLIMUS
  2. MYFORTIC (MYCOPHENOLIC ACID) UNKNOWN [Suspect]
     Active Substance: MYCOPHENOLATE SODIUM

REACTIONS (1)
  - Kidney transplant rejection [None]
